FAERS Safety Report 8190100-5 (Version None)
Quarter: 2012Q1

REPORT INFORMATION
  Report Type: 
  Country: None (occurrence: None)
  Receive Date: 20120307
  Receipt Date: 20120307
  Transmission Date: 20120608
  Serious: No
  Sender: FDA-Public Use
  Company Number: None

PATIENT
  Age: 57 Year
  Sex: Female
  Weight: 58.513 kg

DRUGS (1)
  1. SYMBYAX [Suspect]
     Indication: BIPOLAR DISORDER
     Dosage: ONE TAB
     Route: 048
     Dates: start: 20110909, end: 20120305

REACTIONS (2)
  - BLOOD CHOLESTEROL INCREASED [None]
  - LOW DENSITY LIPOPROTEIN INCREASED [None]
